FAERS Safety Report 19157657 (Version 1)
Quarter: 2021Q2

REPORT INFORMATION
  Report Type: Spontaneous
  Country: US (occurrence: US)
  Receive Date: 20210420
  Receipt Date: 20210420
  Transmission Date: 20210717
  Serious: Yes (Hospitalization, Other)
  Sender: FDA-Public Use
  Company Number: US-BAYER-2021-121889

PATIENT
  Age: 65 Year
  Sex: Female
  Weight: 68.03 kg

DRUGS (3)
  1. ASPIRIN (PAIN AND FEVER) [Suspect]
     Active Substance: ASPIRIN
  2. MEMANTINE. [Concomitant]
     Active Substance: MEMANTINE
  3. FIRDAPSE [Suspect]
     Active Substance: AMIFAMPRIDINE PHOSPHATE
     Indication: MYASTHENIC SYNDROME
     Dosage: 20 MG, QID
     Dates: start: 2020

REACTIONS (4)
  - Asthenia [None]
  - Myasthenic syndrome [None]
  - Blood loss anaemia [None]
  - Gastric ulcer haemorrhage [None]

NARRATIVE: CASE EVENT DATE: 202103
